FAERS Safety Report 6739971-7 (Version None)
Quarter: 2010Q2

REPORT INFORMATION
  Report Type: 
  Country: None (occurrence: None)
  Receive Date: 20100525
  Receipt Date: 20100513
  Transmission Date: 20101027
  Serious: Yes (Other)
  Sender: FDA-Public Use
  Company Number: US-ELI_LILLY_AND_COMPANY-US201005003562

PATIENT
  Sex: Female
  Weight: 64.853 kg

DRUGS (25)
  1. BYETTA [Suspect]
     Indication: TYPE 2 DIABETES MELLITUS
     Dosage: 10 UG, 2/D
     Route: 058
     Dates: start: 20061201
  2. BACLOFEN [Concomitant]
     Indication: ARTHRALGIA
     Route: 048
  3. IBUPROFEN [Concomitant]
     Indication: ARTHRALGIA
     Route: 048
  4. ACTOPLUS MET [Concomitant]
     Indication: TYPE 2 DIABETES MELLITUS
     Route: 048
  5. ADVAIR DISKUS 100/50 [Concomitant]
     Indication: ASTHMA
  6. DECADRON [Concomitant]
     Route: 048
  7. DOXEPIN HCL [Concomitant]
     Route: 048
  8. FERROUS SULFATE TAB [Concomitant]
     Route: 048
  9. HYDROCHLOROTHIAZIDE [Concomitant]
     Route: 048
  10. METHYLDOPA [Concomitant]
     Route: 048
  11. POTASSIUM [Concomitant]
     Indication: SUPPLEMENTATION THERAPY
     Route: 048
  12. PROTONIX /01263201/ [Concomitant]
     Indication: GASTROOESOPHAGEAL REFLUX DISEASE
     Route: 048
  13. SINGULAIR [Concomitant]
     Route: 048
  14. RAMELTEON [Concomitant]
     Route: 048
  15. XANAX [Concomitant]
     Route: 048
  16. XOPENEX [Concomitant]
     Indication: ASTHMA
  17. XYZAL [Concomitant]
     Route: 048
  18. ZETIA [Concomitant]
     Route: 048
  19. ZOCOR [Concomitant]
     Route: 048
  20. HYDROCODONE [Concomitant]
     Route: 048
  21. NEXIUM [Concomitant]
     Indication: GASTROOESOPHAGEAL REFLUX DISEASE
     Route: 048
  22. IMIPRAMINE [Concomitant]
     Route: 048
  23. OPTIVAR [Concomitant]
  24. MAXAIR [Concomitant]
     Indication: ASTHMA
  25. ZYRTEC [Concomitant]
     Route: 048

REACTIONS (8)
  - BLOOD GLUCOSE INCREASED [None]
  - IMMUNE SYSTEM DISORDER [None]
  - IMPAIRED HEALING [None]
  - INJECTION SITE HAEMATOMA [None]
  - INJECTION SITE PAIN [None]
  - PAIN [None]
  - SCIATICA [None]
  - SYSTEMIC LUPUS ERYTHEMATOSUS [None]
